FAERS Safety Report 15628793 (Version 10)
Quarter: 2020Q2

REPORT INFORMATION
  Report Type: Report from Study
  Country: US (occurrence: US)
  Receive Date: 20181116
  Receipt Date: 20200629
  Transmission Date: 20200713
  Serious: Yes (Hospitalization, Other)
  Sender: FDA-Public Use
  Company Number: US-ACTELION-A-NJ2018-181961

PATIENT
  Age: 64 Year
  Sex: Female
  Weight: 68.03 kg

DRUGS (20)
  1. ALLEGRA [Concomitant]
     Active Substance: FEXOFENADINE HYDROCHLORIDE
     Indication: SEASONAL ALLERGY
     Dosage: 180 MG, QD
     Route: 048
     Dates: start: 2010
  2. SINGULAIR [Concomitant]
     Active Substance: MONTELUKAST SODIUM
     Indication: SEASONAL ALLERGY
     Dosage: 10 MG, QD
     Route: 048
     Dates: start: 2008
  3. ADCIRCA [Concomitant]
     Active Substance: TADALAFIL
     Dosage: UNK
     Dates: start: 20191119
  4. OPSUMIT [Suspect]
     Active Substance: MACITENTAN
     Indication: PULMONARY ARTERIAL HYPERTENSION
     Dosage: 10 MG, QD
     Route: 048
     Dates: start: 20180213
  5. TADALAFIL. [Concomitant]
     Active Substance: TADALAFIL
     Indication: PULMONARY HYPERTENSION
     Dosage: 20 MG, UNK
     Dates: start: 20180712
  6. VITAMIN D3 [Concomitant]
     Active Substance: CHOLECALCIFEROL
     Indication: SUPPLEMENTATION THERAPY
     Dosage: 1000 U, QD
     Route: 048
     Dates: start: 2000
  7. NEXIUM [Concomitant]
     Active Substance: ESOMEPRAZOLE MAGNESIUM
     Indication: GASTROOESOPHAGEAL REFLUX DISEASE
     Dosage: 40 MG, QD
     Route: 048
     Dates: start: 2004
  8. VITAMIN B12 [Concomitant]
     Active Substance: CYANOCOBALAMIN
     Indication: SUPPLEMENTATION THERAPY
     Dosage: 1000 MCG, QD
     Dates: start: 20171004
  9. FOSAMAX [Concomitant]
     Active Substance: ALENDRONATE SODIUM
     Dosage: UNK
     Dates: start: 20191119
  10. LEVAQUIN [Concomitant]
     Active Substance: LEVOFLOXACIN
     Dosage: UNK
     Dates: start: 20191119
  11. ELIQUIS [Concomitant]
     Active Substance: APIXABAN
  12. ZYRTEC [Concomitant]
     Active Substance: CETIRIZINE HYDROCHLORIDE
     Dosage: UNK
     Dates: start: 20191223
  13. OPSUMIT [Suspect]
     Active Substance: MACITENTAN
     Dosage: 10 MG, QD
     Route: 048
  14. ASPIRIN. [Concomitant]
     Active Substance: ASPIRIN
     Indication: CARDIAC DISORDER
     Dosage: 81 MG, QD
     Dates: start: 2000
  15. FLONASE [Concomitant]
     Active Substance: FLUTICASONE PROPIONATE
     Indication: SEASONAL ALLERGY
     Dosage: 50 MCG/ACT, UNK
     Route: 045
     Dates: start: 2010
  16. CLINORIL [Concomitant]
     Active Substance: SULINDAC
     Dosage: UNK
     Dates: start: 20191119
  17. MUCINEX D [Concomitant]
     Active Substance: GUAIFENESIN\PSEUDOEPHEDRINE HYDROCHLORIDE
  18. PREDNISONE. [Concomitant]
     Active Substance: PREDNISONE
     Dosage: UNK
     Dates: start: 20191119
  19. XOPENEX [Concomitant]
     Active Substance: LEVALBUTEROL HYDROCHLORIDE
     Dosage: UNK
     Dates: start: 20191119
  20. VOLTAREN [Concomitant]
     Active Substance: DICLOFENAC SODIUM
     Dosage: UNK
     Dates: start: 20191119

REACTIONS (33)
  - Fall [Unknown]
  - Surgery [Unknown]
  - Vomiting [Recovered/Resolved]
  - Product dose omission [Unknown]
  - Dyspnoea [Unknown]
  - Syncope [Unknown]
  - Cough [Recovered/Resolved]
  - Pyrexia [Unknown]
  - Arthralgia [Recovered/Resolved]
  - Transaminases increased [Not Recovered/Not Resolved]
  - Dizziness [Unknown]
  - Pneumonia [Recovered/Resolved]
  - Liver function test increased [Unknown]
  - Upper respiratory tract infection [Not Recovered/Not Resolved]
  - Fatigue [Unknown]
  - Open reduction of fracture [Recovered/Resolved]
  - Pleural effusion [Unknown]
  - Osteoarthritis [Unknown]
  - Ankle fracture [Recovered/Resolved]
  - Chest discomfort [Recovered/Resolved]
  - Alanine aminotransferase increased [Not Recovered/Not Resolved]
  - Nausea [Recovered/Resolved]
  - Asthma [Unknown]
  - Malaise [Unknown]
  - Productive cough [Not Recovered/Not Resolved]
  - Respiratory tract irritation [Not Recovered/Not Resolved]
  - Pulmonary hypertension [Recovered/Resolved]
  - Vertigo [Recovered/Resolved]
  - Pneumonia aspiration [Recovered/Resolved]
  - Bradycardia [Recovered/Resolved]
  - Atrial flutter [Recovered/Resolved]
  - Nasopharyngitis [Unknown]
  - Upper respiratory tract congestion [Not Recovered/Not Resolved]

NARRATIVE: CASE EVENT DATE: 20181017
